FAERS Safety Report 19311040 (Version 1)
Quarter: 2021Q2

REPORT INFORMATION
  Report Type: Spontaneous
  Country: US (occurrence: US)
  Receive Date: 20210526
  Receipt Date: 20210526
  Transmission Date: 20210717
  Serious: Yes (Other)
  Sender: FDA-Public Use
  Company Number: US-AUROBINDO-AUR-APL-2021-020833

PATIENT
  Age: 17 Year
  Sex: Male

DRUGS (1)
  1. MILRINONE LACTATE. [Suspect]
     Active Substance: MILRINONE LACTATE
     Indication: CARDIAC FAILURE
     Dosage: UNK (CONTINUOUS INFUSION)
     Route: 065

REACTIONS (1)
  - Drug ineffective [Unknown]
